FAERS Safety Report 18960099 (Version 1)
Quarter: 2021Q1

REPORT INFORMATION
  Report Type: Spontaneous
  Country: US (occurrence: US)
  Receive Date: 20210302
  Receipt Date: 20210302
  Transmission Date: 20210420
  Serious: No
  Sender: FDA-Public Use
  Company Number: US-AMERICAN REGENT INC-2020000980

PATIENT
  Age: 58 Year
  Sex: Male
  Weight: 70.3 kg

DRUGS (2)
  1. ESTRADIOL VALERATE INJECTION, USP (0870?05) [Suspect]
     Active Substance: ESTRADIOL VALERATE
     Indication: GENDER DYSPHORIA
     Dosage: 0.5 MILLILITER EVERY TWO WEEKS
     Route: 058
     Dates: start: 20200304, end: 20200415
  2. TESTOSTERONE CYPIONATE INJECTION (0517?1830?01) [Concomitant]
     Active Substance: TESTOSTERONE CYPIONATE
     Indication: PRODUCT USED FOR UNKNOWN INDICATION
     Route: 065

REACTIONS (3)
  - Hypersensitivity [Recovering/Resolving]
  - Off label use [Unknown]
  - Product administered at inappropriate site [Unknown]
